FAERS Safety Report 6262383-X (Version None)
Quarter: 2009Q3

REPORT INFORMATION
  Report Type: 
  Country: None (occurrence: None)
  Receive Date: 20090709
  Receipt Date: 20090629
  Transmission Date: 20100115
  Serious: Yes (Other)
  Sender: FDA-Public Use
  Company Number: BR-JNJFOC-20090702236

PATIENT
  Age: 12 Month
  Sex: Female

DRUGS (1)
  1. PANTELMIN [Suspect]
     Indication: HELMINTHIC INFECTION
     Route: 065

REACTIONS (2)
  - RESPIRATORY DISORDER [None]
  - URTICARIA [None]
